FAERS Safety Report 9167970 (Version 1)
Quarter: 2013Q1

REPORT INFORMATION
  Report Type: Spontaneous
  Country: ES (occurrence: None)
  Receive Date: 20130307
  Receipt Date: 20130307
  Transmission Date: 20140127
  Serious: Yes (Hospitalization)
  Sender: FDA-Public Use
  Company Number: IMP_06581_2013

PATIENT
  Age: 76 Year
  Sex: Male

DRUGS (3)
  1. METFORMIN (METFORMIN) [Suspect]
     Indication: TYPE 2 DIABETES MELLITUS
     Dosage: 1X/24 HOURS
  2. VILDAGLIPTIN [Suspect]
     Indication: TYPE 2 DIABETES MELLITUS
     Dosage: (DF)
  3. IBUPROFEN [Concomitant]

REACTIONS (8)
  - Discomfort [None]
  - Abdominal pain [None]
  - Metabolic acidosis [None]
  - Renal impairment [None]
  - Hyperkalaemia [None]
  - Respiratory failure [None]
  - Haemodynamic instability [None]
  - Continuous haemodiafiltration [None]
